FAERS Safety Report 4602826-8 (Version None)
Quarter: 2005Q1

REPORT INFORMATION
  Report Type: 
  Country: None (occurrence: None)
  Receive Date: 20050307
  Receipt Date: 20041004
  Transmission Date: 20050727
  Serious: Yes (Hospitalization)
  Sender: FDA-Public Use
  Company Number: 805#1#2004-00025

PATIENT
  Age: 1 Year
  Sex: Female

DRUGS (12)
  1. ALPROSTADIL [Suspect]
     Indication: HEART DISEASE CONGENITAL
     Dosage: 1.700 NANOGRAM/MIN, INTRAVENOUS DRIP
     Route: 041
     Dates: start: 20040809, end: 20040816
  2. ALPROSTADIL [Suspect]
     Indication: PATENT DUCTUS ARTERIOSUS
     Dosage: 1.700 NANOGRAM/MIN, INTRAVENOUS DRIP
     Route: 041
     Dates: start: 20040809, end: 20040816
  3. ALPROSTADIL-(LIPLE) (ALPROSTADIL) [Suspect]
     Indication: HEART DISEASE CONGENITAL
     Dosage: 70 NANOGRAM/MIN, INTRAVENOUS DRIP
     Route: 041
     Dates: start: 20040721, end: 20040809
  4. ALPROSTADIL-(LIPLE) (ALPROSTADIL) [Suspect]
     Indication: PATENT DUCTUS ARTERIOSUS
     Dosage: 70 NANOGRAM/MIN, INTRAVENOUS DRIP
     Route: 041
     Dates: start: 20040721, end: 20040809
  5. ALPROSTADIL-(TANDETRON) (ALPROSTADIL) [Suspect]
     Indication: HEART DISEASE CONGENITAL
     Dosage: 700 NANOGRAM/MIN, INTRAVENOUS DRIP
     Route: 041
     Dates: start: 20040816, end: 20040830
  6. ALPROSTADIL-(TANDETRON) (ALPROSTADIL) [Suspect]
     Indication: PATENT DUCTUS ARTERIOSUS
     Dosage: 700 NANOGRAM/MIN, INTRAVENOUS DRIP
     Route: 041
     Dates: start: 20040816, end: 20040830
  7. CLYNDAMYCIN-PHOSPHATE (CLINDAMYCIN) [Suspect]
     Dosage: 210 MG, INTRAVENOUS (NOT OTHERWISE SPECIFIED)
     Route: 042
     Dates: start: 20040808, end: 20040809
  8. SULTAMICILLIN-TOSILATE (SULTAMICILLIN) [Concomitant]
  9. PANIPENEM/BETAMIPRON (BETAMIPRON, PANIPENEM) [Concomitant]
  10. ERYTHROMYCIN [Concomitant]
  11. AMIKACIN SULFATE [Concomitant]
  12. CEFACLOR [Concomitant]

REACTIONS (2)
  - STEVENS-JOHNSON SYNDROME [None]
  - THERAPY NON-RESPONDER [None]
